FAERS Safety Report 13637936 (Version 2)
Quarter: 2020Q2

REPORT INFORMATION
  Report Type: Spontaneous
  Country: US (occurrence: US)
  Receive Date: 20170609
  Receipt Date: 20200417
  Transmission Date: 20200713
  Serious: Yes (Death, Hospitalization, Other)
  Sender: FDA-Public Use
  Company Number: US-009507513-1706USA002864

PATIENT
  Sex: Female
  Weight: 74.38 kg

DRUGS (4)
  1. JANUMET [Suspect]
     Active Substance: METFORMIN HYDROCHLORIDE\SITAGLIPTIN PHOSPHATE
     Dosage: 50/1000 MG TWICE A DAY
     Route: 048
     Dates: start: 20110928, end: 201306
  2. JANUMET [Suspect]
     Active Substance: METFORMIN HYDROCHLORIDE\SITAGLIPTIN PHOSPHATE
     Dosage: 50/1000 MG TWICE A DAY
     Route: 048
     Dates: start: 20151101, end: 201511
  3. JANUVIA [Suspect]
     Active Substance: SITAGLIPTIN PHOSPHATE
     Indication: TYPE 2 DIABETES MELLITUS
     Dosage: 100 MILLIGRAM, QD
     Route: 048
     Dates: start: 20130710, end: 201402
  4. JANUMET [Suspect]
     Active Substance: METFORMIN HYDROCHLORIDE\SITAGLIPTIN PHOSPHATE
     Indication: DIABETES MELLITUS INADEQUATE CONTROL
     Dosage: 50/500 MG TWICE A DAY
     Route: 048
     Dates: start: 20140228, end: 201509

REACTIONS (18)
  - Metastases to liver [Unknown]
  - Deep vein thrombosis [Unknown]
  - Tachycardia [Unknown]
  - Mental status changes [Recovering/Resolving]
  - Carbohydrate antigen 27.29 increased [Unknown]
  - Depression [Unknown]
  - Pancreatic carcinoma metastatic [Fatal]
  - Diverticulum [Unknown]
  - Obesity [Unknown]
  - Leukocytosis [Unknown]
  - Left ventricular dysfunction [Unknown]
  - Troponin increased [Unknown]
  - Pulmonary embolism [Unknown]
  - Apathy [Unknown]
  - Transaminases increased [Recovered/Resolved]
  - Dementia [Unknown]
  - Faecaloma [Recovering/Resolving]
  - Somnolence [Unknown]

NARRATIVE: CASE EVENT DATE: 201409
